FAERS Safety Report 19286310 (Version 2)
Quarter: 2021Q4

REPORT INFORMATION
  Report Type: Spontaneous
  Country: CN (occurrence: None)
  Receive Date: 20210521
  Receipt Date: 20211217
  Transmission Date: 20220303
  Serious: Yes (Other)
  Sender: FDA-Public Use
  Company Number: CN-ROCHE-2832689

PATIENT
  Age: 58 Year
  Sex: Male

DRUGS (12)
  1. TECENTRIQ [Suspect]
     Active Substance: ATEZOLIZUMAB
     Indication: Small cell lung cancer
     Route: 041
     Dates: start: 20201015, end: 20201201
  2. TECENTRIQ [Suspect]
     Active Substance: ATEZOLIZUMAB
     Route: 041
     Dates: start: 20210306
  3. TECENTRIQ [Suspect]
     Active Substance: ATEZOLIZUMAB
     Dosage: 2 CYCLES MAINTENANCE TREATMENT
     Route: 041
     Dates: start: 20210413
  4. ETOPOSIDE [Concomitant]
     Active Substance: ETOPOSIDE
     Indication: Small cell lung cancer
     Route: 041
     Dates: start: 20201015, end: 20201201
  5. ETOPOSIDE [Concomitant]
     Active Substance: ETOPOSIDE
     Route: 041
     Dates: start: 20201228
  6. ETOPOSIDE [Concomitant]
     Active Substance: ETOPOSIDE
     Dosage: 1 CYCLE
     Dates: start: 20210203
  7. ETOPOSIDE [Concomitant]
     Active Substance: ETOPOSIDE
     Dosage: 1 CYCLE
     Dates: start: 20210306
  8. CISPLATIN [Concomitant]
     Active Substance: CISPLATIN
     Indication: Small cell lung cancer
     Route: 041
     Dates: start: 20201015, end: 20201201
  9. CISPLATIN [Concomitant]
     Active Substance: CISPLATIN
     Route: 041
     Dates: start: 20201228
  10. CISPLATIN [Concomitant]
     Active Substance: CISPLATIN
     Dosage: 1 CYCLE
     Dates: start: 20210203
  11. CISPLATIN [Concomitant]
     Active Substance: CISPLATIN
     Dosage: 1 CYCLE
     Dates: start: 20210306
  12. IRINOTECAN [Concomitant]
     Active Substance: IRINOTECAN

REACTIONS (3)
  - Myelosuppression [Unknown]
  - Gastrointestinal disorder [Unknown]
  - Radiation pneumonitis [Unknown]
